FAERS Safety Report 4277493-6 (Version None)
Quarter: 2004Q1

REPORT INFORMATION
  Report Type: 
  Country: None (occurrence: None)
  Receive Date: 20040122
  Receipt Date: 20011121
  Transmission Date: 20041129
  Serious: Yes (Hospitalization, Other)
  Sender: FDA-Public Use
  Company Number: AU-BRISTOL-MYERS SQUIBB COMPANY-11596533

PATIENT
  Age: 85 Year
  Sex: Male

DRUGS (11)
  1. PRAVASTATIN SODIUM [Suspect]
     Dosage: MOST RECENT DOSE PRIOR TO EVENT WAS 14NOV01.
     Route: 048
     Dates: start: 20011025
  2. GATIFLOXACIN [Suspect]
     Dosage: MOST RECENT DOSE PRIOR TO EVENT WAS 14NOV01.
     Route: 048
     Dates: start: 20011114
  3. ZANTAC [Concomitant]
     Route: 048
  4. IMDUR [Concomitant]
     Route: 048
     Dates: start: 19980101
  5. ATENOLOL [Concomitant]
     Route: 048
     Dates: start: 19961009
  6. NORVASC [Concomitant]
     Route: 048
     Dates: start: 19950101
  7. FOLIC ACID [Concomitant]
     Route: 048
     Dates: start: 19990101
  8. ASPIRIN [Concomitant]
     Route: 048
     Dates: start: 19950101
  9. CLOPIDOGREL BISULFATE [Concomitant]
     Route: 048
     Dates: start: 20011010
  10. TRITACE [Concomitant]
     Route: 048
     Dates: start: 20011010
  11. SINEMET CR [Concomitant]
     Route: 048
     Dates: start: 19940101

REACTIONS (2)
  - BLOOD PRESSURE SYSTOLIC INCREASED [None]
  - HYPOGLYCAEMIA [None]
